FAERS Safety Report 5023219-8 (Version None)
Quarter: 2006Q2

REPORT INFORMATION
  Report Type: 
  Country: None (occurrence: None)
  Receive Date: 20060612
  Receipt Date: 20060309
  Transmission Date: 20061013
  Serious: Yes (Death, Hospitalization)
  Sender: FDA-Public Use
  Company Number: JP-AVENTIS-200610800JP

PATIENT
  Age: 71 Year
  Sex: Female

DRUGS (5)
  1. TAXOTERE [Suspect]
     Indication: BREAST CANCER METASTATIC
     Route: 041
     Dates: start: 20060223
  2. HERCEPTIN [Suspect]
     Indication: BREAST CANCER METASTATIC
     Route: 041
     Dates: start: 20051208
  3. HERCEPTIN [Suspect]
     Route: 041
  4. OXYCONTIN [Concomitant]
     Indication: PAIN
     Dates: start: 20060201, end: 20060207
  5. OXYCONTIN [Concomitant]
     Dates: start: 20060208

REACTIONS (14)
  - ANOREXIA [None]
  - BREAST CANCER [None]
  - CARDIAC ARREST [None]
  - CARDIAC FAILURE [None]
  - DISEASE PROGRESSION [None]
  - LOSS OF CONSCIOUSNESS [None]
  - MORAXELLA INFECTION [None]
  - MYDRIASIS [None]
  - NEUTROPHIL COUNT DECREASED [None]
  - PNEUMONIA [None]
  - PYREXIA [None]
  - VENTRICULAR FIBRILLATION [None]
  - WHITE BLOOD CELL COUNT DECREASED [None]
  - WHITE BLOOD CELL COUNT INCREASED [None]
